FAERS Safety Report 17167197 (Version 2)
Quarter: 2019Q4

REPORT INFORMATION
  Report Type: Spontaneous
  Country: US (occurrence: US)
  Receive Date: 20191217
  Receipt Date: 20191227
  Transmission Date: 20200122
  Serious: No
  Sender: FDA-Public Use
  Company Number: US-INCYTE CORPORATION-2019IN012251

PATIENT

DRUGS (2)
  1. JAKAFI [Suspect]
     Active Substance: RUXOLITINIB
     Indication: MYELOFIBROSIS
     Dosage: 25 MILLIGRAM, BID
     Route: 048
     Dates: start: 20190424
  2. JAKAFI [Suspect]
     Active Substance: RUXOLITINIB
     Indication: POLYCYTHAEMIA VERA

REACTIONS (6)
  - Vomiting [Unknown]
  - Gastroenteritis viral [Unknown]
  - Weight increased [Not Recovered/Not Resolved]
  - Ovarian cyst [Unknown]
  - Product dose omission [Unknown]
  - Nausea [Unknown]
